FAERS Safety Report 6843423-3 (Version None)
Quarter: 2010Q3

REPORT INFORMATION
  Report Type: 
  Country: None (occurrence: None)
  Receive Date: 20100712
  Receipt Date: 20071114
  Transmission Date: 20110219
  Serious: Yes (Death)
  Sender: FDA-Public Use
  Company Number: WAES 1007PHL00003

PATIENT
  Age: 58 Year
  Sex: Male

DRUGS (7)
  1. VYTORIN [Suspect]
     Dosage: 10-20 MG/DAILY PO
     Route: 048
     Dates: start: 20070810
  2. PLAVIX [Concomitant]
  3. ASPIRIN [Concomitant]
  4. ATORVASTATIN CALCIUM [Concomitant]
  5. ISOSORBIDE DINITRATE [Concomitant]
  6. PERINDOPRIL [Concomitant]
  7. VERAPAMIL [Concomitant]

REACTIONS (1)
  - MYOCARDIAL INFARCTION [None]
